FAERS Safety Report 7215959-7 (Version None)
Quarter: 2011Q1

REPORT INFORMATION
  Report Type: 
  Country: None (occurrence: None)
  Receive Date: 20110107
  Receipt Date: 20101230
  Transmission Date: 20110831
  Serious: Yes (Disabling, Other)
  Sender: FDA-Public Use
  Company Number: US-MERCK-0810USA03089

PATIENT
  Age: 73 Year
  Sex: Female
  Weight: 61 kg

DRUGS (3)
  1. FOSAMAX [Suspect]
     Route: 048
     Dates: start: 20010701, end: 20060501
  2. FOSAMAX [Suspect]
     Route: 048
     Dates: start: 20060501, end: 20070101
  3. FOSAMAX [Suspect]
     Indication: OSTEOPOROSIS
     Route: 048
     Dates: start: 20010501, end: 20010701

REACTIONS (24)
  - OSTEOPENIA [None]
  - ORAL DISORDER [None]
  - NOCTURIA [None]
  - CONSTIPATION [None]
  - OVERDOSE [None]
  - ABSCESS [None]
  - ORAL INFECTION [None]
  - VISUAL IMPAIRMENT [None]
  - OEDEMA PERIPHERAL [None]
  - BRADYCARDIA [None]
  - BONE DISORDER [None]
  - BLOOD BLISTER [None]
  - ARTHRALGIA [None]
  - CATARACT [None]
  - WEIGHT DECREASED [None]
  - SUPRAVENTRICULAR EXTRASYSTOLES [None]
  - OSTEONECROSIS OF JAW [None]
  - JAW DISORDER [None]
  - INAPPROPRIATE SCHEDULE OF DRUG ADMINISTRATION [None]
  - OSTEOARTHRITIS [None]
  - FATIGUE [None]
  - HAEMORRHOIDS [None]
  - RENAL FAILURE [None]
  - FALL [None]
